FAERS Safety Report 26093825 (Version 1)
Quarter: 2025Q4

REPORT INFORMATION
  Report Type: Report from Study
  Country: US (occurrence: US)
  Receive Date: 20251126
  Receipt Date: 20251126
  Transmission Date: 20260118
  Serious: Yes (Other)
  Sender: ALEXION PHARMACEUTICALS
  Company Number: US-ASTRAZENECA-202511NAM018079US

PATIENT
  Age: 73 Year
  Sex: Male

DRUGS (1)
  1. STRENSIQ [Suspect]
     Active Substance: ASFOTASE ALFA
     Indication: Phosphorus metabolism disorder
     Dosage: 80 MILLIGRAM, Q3W
     Route: 065

REACTIONS (6)
  - Hypothermia [Unknown]
  - COVID-19 [Unknown]
  - Blood glucose increased [Unknown]
  - Blood urea nitrogen/creatinine ratio increased [Unknown]
  - Blood chloride decreased [Unknown]
  - Aspartate aminotransferase decreased [Unknown]

NARRATIVE: CASE EVENT DATE: 20220101
